FAERS Safety Report 25719991 (Version 3)
Quarter: 2025Q3

REPORT INFORMATION
  Report Type: Spontaneous
  Country: EU (occurrence: EU)
  Receive Date: 20250825
  Receipt Date: 20250826
  Transmission Date: 20251021
  Serious: Yes (Life-Threatening)
  Sender: HETERO
  Company Number: EU-AMAROX PHARMA-AMR2025ES04916

PATIENT
  Age: 21 Year

DRUGS (3)
  1. FLUOXETINE [Suspect]
     Active Substance: FLUOXETINE HYDROCHLORIDE
     Indication: Product used for unknown indication
     Route: 065
  2. IBUPROFEN [Suspect]
     Active Substance: IBUPROFEN
     Indication: Product used for unknown indication
     Route: 065
  3. SODIUM NITRITE [Suspect]
     Active Substance: SODIUM NITRITE
     Indication: Product used for unknown indication
     Route: 065

REACTIONS (1)
  - Overdose [Unknown]
